FAERS Safety Report 6865447-2 (Version None)
Quarter: 2010Q3

REPORT INFORMATION
  Report Type: 
  Country: None (occurrence: None)
  Receive Date: 20100721
  Receipt Date: 20100713
  Transmission Date: 20110219
  Serious: Yes (Other)
  Sender: FDA-Public Use
  Company Number: US-AMGEN-QUU424065

PATIENT
  Sex: Female

DRUGS (1)
  1. ENBREL [Suspect]
     Indication: PSORIATIC ARTHROPATHY
     Dates: start: 20030701

REACTIONS (9)
  - BLOOD URIC ACID DECREASED [None]
  - HEADACHE [None]
  - KIDNEY INFECTION [None]
  - LOSS OF CONSCIOUSNESS [None]
  - NEPHROLITHIASIS [None]
  - PAIN [None]
  - PSORIASIS [None]
  - SINUSITIS [None]
  - VITAMIN B12 DECREASED [None]
